FAERS Safety Report 4681627-9 (Version None)
Quarter: 2005Q2

REPORT INFORMATION
  Report Type: 
  Country: None (occurrence: None)
  Receive Date: 20050602
  Receipt Date: 20050513
  Transmission Date: 20051028
  Serious: Yes (Hospitalization, Other)
  Sender: FDA-Public Use
  Company Number: USA040361423

PATIENT
  Age: 71 Year
  Sex: Female
  Weight: 34.0198 kg

DRUGS (18)
  1. FORTEO [Suspect]
     Indication: OSTEOPENIA
     Dosage: 20 UG/1 DAY
     Dates: start: 20030408, end: 20050401
  2. PREVACID [Concomitant]
  3. CLONIDINE [Concomitant]
  4. METOPROLOL [Concomitant]
  5. LIPITOR [Concomitant]
  6. SYNTHROID [Concomitant]
  7. PAXIL [Concomitant]
  8. VIOXX [Concomitant]
  9. CLARINEX [Concomitant]
  10. FLUTICASONE W/SALMETEROL [Concomitant]
  11. LOSARTAN [Concomitant]
  12. HYDROCHLOROTHIAZIDE [Concomitant]
  13. ASPIRIN [Concomitant]
  14. NORVAC (AMLODIPINE) [Concomitant]
  15. CALCIUM GLUCONATE [Concomitant]
  16. GLUCOSAMINE [Concomitant]
  17. CONDROITINA (CHONDROITIN SULFATE SODIUM) [Concomitant]
  18. ZADITOR (KETOTIFEN) [Concomitant]

REACTIONS (25)
  - ATRIAL FIBRILLATION [None]
  - ATRIAL FLUTTER [None]
  - BLOOD MAGNESIUM DECREASED [None]
  - BLOOD POTASSIUM DECREASED [None]
  - CELLULITIS [None]
  - CLOSTRIDIUM COLITIS [None]
  - CONDITION AGGRAVATED [None]
  - DEHYDRATION [None]
  - DERMATITIS [None]
  - HEART RATE INCREASED [None]
  - INJECTION SITE ERYTHEMA [None]
  - INJECTION SITE HAEMORRHAGE [None]
  - INJECTION SITE URTICARIA [None]
  - INSOMNIA [None]
  - LYMPHOEDEMA [None]
  - NODULE [None]
  - OEDEMA PERIPHERAL [None]
  - PALPITATIONS [None]
  - PHARMACEUTICAL PRODUCT COMPLAINT [None]
  - PYREXIA [None]
  - SKIN ULCER [None]
  - SOMNOLENCE [None]
  - URTICARIA [None]
  - VENOUS STASIS [None]
  - VOMITING [None]
